FAERS Safety Report 23200842 (Version 1)
Quarter: 2023Q4

REPORT INFORMATION
  Report Type: Spontaneous
  Country: RU (occurrence: None)
  Receive Date: 20231118
  Receipt Date: 20231118
  Transmission Date: 20240109
  Serious: Yes (Other)
  Sender: FDA-Public Use
  Company Number: RU-ROCHE-3323125

PATIENT
  Age: 57 Year
  Sex: Male

DRUGS (4)
  1. ATEZOLIZUMAB [Suspect]
     Active Substance: ATEZOLIZUMAB
     Indication: Lung neoplasm malignant
     Dosage: 4 CYCLES OF CT+IT + TT REGIMEN AND 4 CYCLES OF IT + TT MAINTENANCE REGIMEN
     Route: 041
     Dates: start: 20220520, end: 20221108
  2. BEVACIZUMAB [Suspect]
     Active Substance: BEVACIZUMAB
     Indication: Lung neoplasm malignant
     Dosage: 4 CYCLES OF CT+IT + TT REGIMEN AND 4 CYCLES OF IT + TT MAINTENANCE REGIMEN
     Route: 042
     Dates: start: 20220520, end: 20221108
  3. PACLITAXEL [Suspect]
     Active Substance: PACLITAXEL
     Indication: Lung neoplasm malignant
     Dosage: 4 CYCLES OF CT+IT + TT REGIMEN
     Route: 042
     Dates: start: 20220520, end: 20221108
  4. CARBOPLATIN [Suspect]
     Active Substance: CARBOPLATIN
     Indication: Lung neoplasm malignant
     Dosage: 4 CYCLES OF CT +IT +TT REGIMEN, AUC 6 IV
     Route: 042
     Dates: start: 20220520, end: 20221108

REACTIONS (10)
  - Neutropenia [Unknown]
  - Ejection fraction decreased [Unknown]
  - Anaemia [Unknown]
  - Transaminases increased [Unknown]
  - Nausea [Unknown]
  - Asthenia [Unknown]
  - Fatigue [Unknown]
  - Arthralgia [Unknown]
  - Hypothyroidism [Unknown]
  - Dyspnoea [Unknown]
